FAERS Safety Report 8076861-4 (Version None)
Quarter: 2012Q1

REPORT INFORMATION
  Report Type: 
  Country: None (occurrence: None)
  Receive Date: 20120127
  Receipt Date: 20120119
  Transmission Date: 20120608
  Serious: Yes (Hospitalization)
  Sender: FDA-Public Use
  Company Number: FR-MERCK-1201USA03227

PATIENT
  Age: 61 Year
  Sex: Male

DRUGS (18)
  1. VANCOMYCIN [Concomitant]
     Route: 042
     Dates: start: 20110819, end: 20110905
  2. ACETAMINOPHEN [Concomitant]
     Route: 048
     Dates: start: 20110823
  3. NEXIUM [Concomitant]
     Route: 048
     Dates: start: 20110823
  4. DIPEPTIVEN [Concomitant]
     Route: 042
  5. BACTRIM DS [Suspect]
     Indication: ABDOMINAL SEPSIS
     Route: 048
     Dates: start: 20110910, end: 20110911
  6. CEFTAZIDIME SODIUM [Suspect]
     Indication: ABDOMINAL SEPSIS
     Route: 042
     Dates: start: 20110905, end: 20110910
  7. PRIMAXIN [Concomitant]
     Route: 051
  8. LEVOTHYROXINE SODIUM [Concomitant]
     Indication: HYPOTHYROIDISM
     Route: 065
  9. CANCIDAS [Suspect]
     Route: 042
     Dates: start: 20110904, end: 20110911
  10. PIPERACILLIN/TAZOBACTAM [Concomitant]
     Route: 042
     Dates: start: 20110822, end: 20110905
  11. OFLOXACIN [Suspect]
     Indication: ABDOMINAL SEPSIS
     Route: 048
     Dates: start: 20110910, end: 20110912
  12. ACUPAN [Concomitant]
     Route: 042
     Dates: start: 20110823
  13. LEVOCARNIL [Concomitant]
     Route: 042
  14. ZYVOX [Suspect]
     Indication: ABDOMINAL SEPSIS
     Route: 042
     Dates: start: 20110905, end: 20110910
  15. AMIKACIN [Concomitant]
     Route: 042
     Dates: start: 20110819, end: 20110822
  16. ATARAX [Concomitant]
     Route: 048
     Dates: start: 20110911
  17. LOVENOX [Concomitant]
     Route: 058
     Dates: start: 20110823
  18. CANCIDAS [Suspect]
     Indication: ABDOMINAL SEPSIS
     Route: 042
     Dates: start: 20110819, end: 20110823

REACTIONS (2)
  - DERMATITIS EXFOLIATIVE [None]
  - URTICARIA [None]
